FAERS Safety Report 6362692-X (Version None)
Quarter: 2009Q3

REPORT INFORMATION
  Report Type: 
  Country: None (occurrence: None)
  Receive Date: 20090919
  Receipt Date: 20090615
  Transmission Date: 20100115
  Serious: Yes (Other)
  Sender: FDA-Public Use
  Company Number: US-ABBOTT-09P-163-0578481-00

PATIENT
  Sex: Male
  Weight: 112.59 kg

DRUGS (12)
  1. HUMIRA [Suspect]
     Indication: ANKYLOSING SPONDYLITIS
     Route: 058
     Dates: start: 20070101, end: 20081201
  2. HUMIRA [Suspect]
     Route: 058
     Dates: start: 20090301
  3. ALBUTEROL [Concomitant]
     Indication: DYSPNOEA
  4. PRIMIDINE TARTRATE [Concomitant]
     Indication: GLAUCOMA
  5. DORZOLAMIDE [Concomitant]
     Indication: GLAUCOMA
  6. FORMOTEROL FUMARATE [Concomitant]
     Indication: DYSPNOEA
  7. GLYBURIDE [Concomitant]
     Indication: DIABETES MELLITUS
  8. LISINOPRIL [Concomitant]
     Indication: HYPERTENSION
  9. OMEPRAZOLE [Concomitant]
     Indication: PROPHYLAXIS AGAINST GASTROINTESTINAL ULCER
  10. IBUPROFEN [Concomitant]
     Indication: PAIN
  11. SIMVASTATIN [Concomitant]
     Indication: BLOOD CHOLESTEROL INCREASED
  12. TRAVOPROVST [Concomitant]
     Indication: GLAUCOMA

REACTIONS (7)
  - DYSPNOEA [None]
  - DYSPNOEA EXERTIONAL [None]
  - JOINT RANGE OF MOTION DECREASED [None]
  - JOINT SWELLING [None]
  - MUSCULOSKELETAL STIFFNESS [None]
  - RESPIRATORY TRACT CONGESTION [None]
  - SLEEP APNOEA SYNDROME [None]
